FAERS Safety Report 5803202-2 (Version None)
Quarter: 2008Q3

REPORT INFORMATION
  Report Type: 
  Country: None (occurrence: None)
  Receive Date: 20080701
  Receipt Date: 20080124
  Transmission Date: 20090109
  Serious: Yes (Hospitalization)
  Sender: FDA-Public Use
  Company Number: US200801005105

PATIENT
  Age: 23 Year
  Sex: Male

DRUGS (2)
  1. HUMALOG [Suspect]
     Dosage: AS NEEDED
     Dates: start: 20000101
  2. LANTUS [Concomitant]

REACTIONS (2)
  - BLOOD GLUCOSE INCREASED [None]
  - DIABETIC KETOACIDOSIS [None]
